FAERS Safety Report 6646679-5 (Version None)
Quarter: 2010Q1

REPORT INFORMATION
  Report Type: 
  Country: None (occurrence: None)
  Receive Date: 20100317
  Receipt Date: 20100308
  Transmission Date: 20100710
  Serious: Yes (Hospitalization)
  Sender: FDA-Public Use
  Company Number: A-US2009-25051

PATIENT
  Age: 62 Year
  Sex: Female

DRUGS (21)
  1. TRACLEER [Suspect]
     Indication: PULMONARY ARTERIAL HYPERTENSION
     Dosage: 125 MG, BID, ORAL
     Route: 048
     Dates: start: 20080614
  2. OXYGEN (OXYGEN) [Concomitant]
  3. ZOLPIDEM [Concomitant]
  4. WARFARIN SODIUM [Concomitant]
  5. SIMVASTATIN [Concomitant]
  6. SERTRALINE HCL [Concomitant]
  7. POTASSIUM CHLORIDE [Concomitant]
  8. SPIRONOLACTONE [Concomitant]
  9. PANTOPRAZOLE SODIUM [Concomitant]
  10. FERROUS GLUCONATE (FERROUS GLUCONATE) [Concomitant]
  11. DIAZEPAM [Concomitant]
  12. FUROSEMIDE [Concomitant]
  13. METOPROLOL (METOPROLOL) [Concomitant]
  14. ALBUTEROL [Concomitant]
  15. IPRATROPIUM BROMIDE [Concomitant]
  16. ATORVASTATIN CALCIUM [Concomitant]
  17. MIRTAZAPINE [Concomitant]
  18. MODAFINIL [Concomitant]
  19. EPOETIN ALFA (EPOETIN ALFA) [Concomitant]
  20. HYDROCODONE (HYDROCODONE) [Concomitant]
  21. ADVAIR (SALMETEROL XINAFOATE, FLUTICASONE PROPIONATE) [Concomitant]

REACTIONS (29)
  - ABDOMINAL PAIN UPPER [None]
  - ANAEMIA [None]
  - ARTERIOVENOUS MALFORMATION [None]
  - ARTHRALGIA [None]
  - ASCITES [None]
  - ASTHENIA [None]
  - BLOOD ALKALINE PHOSPHATASE INCREASED [None]
  - CARDIAC FAILURE CONGESTIVE [None]
  - CELLULITIS [None]
  - CHRONIC OBSTRUCTIVE PULMONARY DISEASE [None]
  - CONDITION AGGRAVATED [None]
  - DIALYSIS [None]
  - DYSPEPSIA [None]
  - FALL [None]
  - FLUID OVERLOAD [None]
  - GAIT DISTURBANCE [None]
  - GASTRIC ULCER [None]
  - GASTRITIS EROSIVE [None]
  - GASTROINTESTINAL HAEMORRHAGE [None]
  - HEPATIC FUNCTION ABNORMAL [None]
  - IRON DEFICIENCY ANAEMIA [None]
  - JOINT SPRAIN [None]
  - LACERATION [None]
  - PAIN [None]
  - PNEUMONIA [None]
  - PROTHROMBIN TIME PROLONGED [None]
  - RECTAL FISSURE [None]
  - RECTAL HAEMORRHAGE [None]
  - RENAL FAILURE [None]
